FAERS Safety Report 16732150 (Version 1)
Quarter: 2019Q3

REPORT INFORMATION
  Report Type: Spontaneous
  Country: CA (occurrence: CA)
  Receive Date: 20190822
  Receipt Date: 20190822
  Transmission Date: 20191005
  Serious: Yes (Other)
  Sender: FDA-Public Use
  Company Number: CA-TEVA-2019-CA-1096162

PATIENT
  Age: 10 Year
  Sex: Female
  Weight: 22 kg

DRUGS (10)
  1. METHOTREXATE (MANUFACTURER UNKNOWN) [Suspect]
     Active Substance: METHOTREXATE
     Indication: ACUTE LYMPHOCYTIC LEUKAEMIA
     Route: 042
  2. CYTARABINE INJECTION [Concomitant]
     Active Substance: CYTARABINE
  3. MERCAPTOPURINE. [Concomitant]
     Active Substance: MERCAPTOPURINE
  4. PEGASPARAGINASE [Concomitant]
     Active Substance: PEGASPARGASE
  5. PREDNISONE. [Concomitant]
     Active Substance: PREDNISONE
  6. METHYLPREDNISOLONE NOS [Concomitant]
     Active Substance: METHYLPREDNISOLONE
  7. VINCRISTINE SULFATE. [Concomitant]
     Active Substance: VINCRISTINE SULFATE
     Route: 042
  8. DEXAMETHASONE. [Concomitant]
     Active Substance: DEXAMETHASONE
  9. DOXORUBICIN HYDROCHLORIDE INJECTION [Concomitant]
     Active Substance: DOXORUBICIN HYDROCHLORIDE
  10. ASPARAGINASE (E.COLI) [Concomitant]
     Active Substance: ASPARAGINASE

REACTIONS (1)
  - Transaminases increased [Recovered/Resolved]
